FAERS Safety Report 17446151 (Version 2)
Quarter: 2024Q4

REPORT INFORMATION
  Report Type: Spontaneous
  Country: US (occurrence: US)
  Receive Date: 20200221
  Receipt Date: 20241022
  Transmission Date: 20250115
  Serious: No
  Sender: SANOFI AVENTIS
  Company Number: US-SA-2020SA037934

PATIENT
  Age: 70 Year
  Sex: Female
  Weight: 69.55 kg

DRUGS (3)
  1. DUPIXENT [Suspect]
     Active Substance: DUPILUMAB
     Indication: Asthma
     Dosage: 600 MG, 1X
     Route: 058
     Dates: start: 20191025, end: 20191025
  2. DUPIXENT [Suspect]
     Active Substance: DUPILUMAB
     Indication: Eczema
     Dosage: 300 MG, QOW
     Route: 058
     Dates: start: 2019
  3. DUPIXENT [Suspect]
     Active Substance: DUPILUMAB
     Indication: Dermatitis atopic
     Dosage: 300 MG, QOW
     Route: 058

REACTIONS (13)
  - Injection site pain [Unknown]
  - Injection site swelling [Recovering/Resolving]
  - Injection site erythema [Recovered/Resolved]
  - Incorrect dose administered by device [Unknown]
  - Device leakage [Unknown]
  - Insomnia [Unknown]
  - Blepharitis [Recovering/Resolving]
  - Eye irritation [Recovering/Resolving]
  - Swelling of eyelid [Recovering/Resolving]
  - Eyelid margin crusting [Recovering/Resolving]
  - Conjunctivitis [Recovering/Resolving]
  - Injection site pain [Unknown]
  - Orthosis user [Unknown]

NARRATIVE: CASE EVENT DATE: 20200201
